FAERS Safety Report 6335017-3 (Version None)
Quarter: 2009Q3

REPORT INFORMATION
  Report Type: 
  Country: None (occurrence: None)
  Receive Date: 20090826
  Receipt Date: 20090814
  Transmission Date: 20100115
  Serious: No
  Sender: FDA-Public Use
  Company Number: B0588746A

PATIENT
  Age: 18 Year
  Sex: Female

DRUGS (1)
  1. ACYCLOVIR [Suspect]
     Indication: VULVAL DISORDER

REACTIONS (4)
  - DRUG EXPOSURE DURING PREGNANCY [None]
  - DRUG RESISTANCE [None]
  - NO THERAPEUTIC RESPONSE [None]
  - TREATMENT NONCOMPLIANCE [None]
